FAERS Safety Report 4902419-9 (Version None)
Quarter: 2006Q1

REPORT INFORMATION
  Report Type: 
  Country: None (occurrence: None)
  Receive Date: 20060202
  Receipt Date: 20060116
  Transmission Date: 20060701
  Serious: Yes (Hospitalization)
  Sender: FDA-Public Use
  Company Number: 220013

PATIENT
  Age: 57 Year
  Sex: Female

DRUGS (6)
  1. AVASTIN [Suspect]
     Indication: COLORECTAL CANCER
     Dosage: 7.5 MG/KG, Q3W, INTRAVENOUS
     Route: 042
     Dates: start: 20051014
  2. CAPECITABINE (CAPECITABINE) [Suspect]
     Indication: COLORECTAL CANCER
     Dosage: 1000 MG/M2, X2, ORAL
     Route: 048
     Dates: start: 20051014
  3. OXALIPLATIN (OXALIPLATIN) [Suspect]
     Indication: COLORECTAL CANCER
     Dosage: 130 MG/M2, 1/WEEK, INTRAVENOUS
     Route: 042
     Dates: start: 20051014
  4. METOCLOPRAMIDE (METOCLOPRAMIDE HYDROCHLORIDE) [Concomitant]
  5. LACTULOSE [Concomitant]
  6. LEVOTHYROXINE SODIUM [Concomitant]

REACTIONS (6)
  - DIARRHOEA [None]
  - HYDRONEPHROSIS [None]
  - INFECTION [None]
  - INFUSION RELATED REACTION [None]
  - ORAL INTAKE REDUCED [None]
  - RENAL FAILURE [None]
